FAERS Safety Report 26118183 (Version 1)
Quarter: 2025Q4

REPORT INFORMATION
  Report Type: Spontaneous
  Country: US (occurrence: US)
  Receive Date: 20251203
  Receipt Date: 20251203
  Transmission Date: 20260118
  Serious: Yes (Hospitalization, Other)
  Sender: TAIHO ONCOLOGY INC
  Company Number: US-TAIHOP-2025-008982

PATIENT
  Age: 61 Year
  Sex: Male

DRUGS (1)
  1. LONSURF [Suspect]
     Active Substance: TIPIRACIL HYDROCHLORIDE\TRIFLURIDINE
     Indication: Colon cancer
     Dosage: CYCLE AND FORM STRENGTH WERE UNKNOWN
     Route: 048
     Dates: start: 20250702

REACTIONS (2)
  - Febrile neutropenia [Unknown]
  - Oesophageal ulcer [Unknown]
